FAERS Safety Report 6181690-2 (Version None)
Quarter: 2009Q2

REPORT INFORMATION
  Report Type: 
  Country: None (occurrence: None)
  Receive Date: 20090506
  Receipt Date: 20090318
  Transmission Date: 20091009
  Serious: Yes (Hospitalization)
  Sender: FDA-Public Use
  Company Number: JP-JNJFOC-20090307069

PATIENT
  Sex: Male
  Weight: 62 kg

DRUGS (26)
  1. TAPENTADOL HYDROCHLORIDE [Suspect]
     Route: 048
     Dates: start: 20090217, end: 20090303
  2. TAPENTADOL HYDROCHLORIDE [Suspect]
     Route: 048
     Dates: start: 20090217, end: 20090303
  3. TAPENTADOL HYDROCHLORIDE [Suspect]
     Route: 048
     Dates: start: 20090217, end: 20090303
  4. TAPENTADOL HYDROCHLORIDE [Suspect]
     Indication: CANCER PAIN
     Route: 048
     Dates: start: 20090217, end: 20090303
  5. TEGAFUR [Suspect]
     Indication: LUNG SQUAMOUS CELL CARCINOMA STAGE UNSPECIFIED
     Route: 048
  6. MAGMITT [Concomitant]
     Indication: CONSTIPATION
  7. PURSENNID [Concomitant]
  8. AMLODIPINE [Concomitant]
     Indication: CANCER PAIN
  9. LOXONIN [Concomitant]
     Indication: CANCER PAIN
  10. GASTER D [Concomitant]
     Indication: PROPHYLAXIS
  11. GABAPEN [Concomitant]
     Indication: CANCER PAIN
  12. KETALAR [Concomitant]
     Indication: CANCER PAIN
     Route: 050
  13. MORPHINE HYDROCHLORIDE [Concomitant]
  14. OPSO [Concomitant]
  15. CLEANAL [Concomitant]
     Indication: SPUTUM ABNORMAL
  16. AZOPT [Concomitant]
     Indication: GLAUCOMA
     Route: 047
  17. XALATAN [Concomitant]
     Indication: GLAUCOMA
  18. KARY UNI [Concomitant]
     Indication: CATARACT
  19. INTEBAN [Concomitant]
     Indication: CANCER PAIN
  20. ISODINE [Concomitant]
     Indication: PROPHYLAXIS
  21. PROHANCE [Concomitant]
     Indication: INVESTIGATION
  22. FLUDEOXYGLUCOSE (18F) [Concomitant]
  23. NAUZELIN [Concomitant]
  24. ADONA [Concomitant]
  25. TRANSAMIN [Concomitant]
  26. BAKTAR [Concomitant]

REACTIONS (1)
  - INTERSTITIAL LUNG DISEASE [None]
